FAERS Safety Report 18291600 (Version 3)
Quarter: 2021Q1

REPORT INFORMATION
  Report Type: Report from Study
  Country: None (occurrence: UY)
  Receive Date: 20200922
  Receipt Date: 20210201
  Transmission Date: 20210419
  Serious: Yes (Other)
  Sender: FDA-Public Use
  Company Number: UY-ABBVIE-20K-168-3574008-00

PATIENT
  Age: 49 Year
  Sex: Female

DRUGS (3)
  1. CICLOPENAL [Concomitant]
     Indication: PRODUCT USED FOR UNKNOWN INDICATION
     Dates: start: 20200915
  2. TRAZIDEX [Concomitant]
     Indication: PRODUCT USED FOR UNKNOWN INDICATION
     Dates: start: 20200915
  3. HUMIRA [Suspect]
     Active Substance: ADALIMUMAB
     Indication: RHEUMATOID ARTHRITIS
     Route: 058
     Dates: start: 20181016, end: 20201207

REACTIONS (7)
  - Sjogren^s syndrome [Not Recovered/Not Resolved]
  - Eye ulcer [Unknown]
  - Drug ineffective [Not Recovered/Not Resolved]
  - Dermatitis allergic [Not Recovered/Not Resolved]
  - Keratitis [Not Recovered/Not Resolved]
  - Rheumatoid arthritis [Unknown]
  - Uveitis [Recovering/Resolving]

NARRATIVE: CASE EVENT DATE: 2020
